FAERS Safety Report 10094687 (Version 1)
Quarter: 2014Q2

REPORT INFORMATION
  Report Type: Spontaneous
  Country: US (occurrence: None)
  Receive Date: 20140418
  Receipt Date: 20140418
  Transmission Date: 20141212
  Serious: Yes (Hospitalization)
  Sender: FDA-Public Use
  Company Number: 2291826

PATIENT
  Age: 67 Year
  Sex: Female

DRUGS (3)
  1. CEFTRIAXONE SODIUM [Suspect]
     Indication: ARTHRITIS INFECTIVE
     Dosage: INTRAVENOUS (NOT OTHERWISE SPECIFIED)
     Route: 042
  2. VANCOMYCIN HYDROCHLORIDE [Suspect]
     Indication: ARTHRITIS INFECTIVE
  3. TOBRAMYCIN [Concomitant]

REACTIONS (9)
  - Arthralgia [None]
  - Dermatitis exfoliative [None]
  - Drug hypersensitivity [None]
  - Eczema [None]
  - Lymphadenopathy [None]
  - Eosinophilic pneumonia [None]
  - Encephalopathy [None]
  - Cerebral infarction [None]
  - Drug reaction with eosinophilia and systemic symptoms [None]
